FAERS Safety Report 12186279 (Version 1)
Quarter: 2016Q1

REPORT INFORMATION
  Report Type: Report from Study
  Country: US (occurrence: US)
  Receive Date: 20160317
  Receipt Date: 20160317
  Transmission Date: 20160526
  Serious: Yes (Death, Other)
  Sender: FDA-Public Use
  Company Number: US-ASTRAZENECA-2016SE27170

PATIENT
  Age: 64 Year
  Sex: Male
  Weight: 85.7 kg

DRUGS (2)
  1. CRESTOR [Suspect]
     Active Substance: ROSUVASTATIN CALCIUM
     Indication: BLOOD CHOLESTEROL ABNORMAL
     Route: 048
     Dates: start: 201309
  2. ATENOLOL. [Suspect]
     Active Substance: ATENOLOL
     Route: 065

REACTIONS (9)
  - Death [Fatal]
  - Renal failure [Unknown]
  - Drug hypersensitivity [Unknown]
  - Breast cyst [Unknown]
  - Chromaturia [Unknown]
  - Rash [Unknown]
  - Weight decreased [Unknown]
  - Dark circles under eyes [Unknown]
  - Toxicity to various agents [Unknown]

NARRATIVE: CASE EVENT DATE: 2006
